FAERS Safety Report 6474794-8 (Version None)
Quarter: 2009Q4

REPORT INFORMATION
  Report Type: 
  Country: None (occurrence: None)
  Receive Date: 20091204
  Receipt Date: 20090205
  Transmission Date: 20100525
  Serious: Yes (Other)
  Sender: FDA-Public Use
  Company Number: GR-ELI_LILLY_AND_COMPANY-GR200902001217

PATIENT
  Age: 48 Year
  Sex: Female
  Weight: 75 kg

DRUGS (3)
  1. CYMBALTA [Suspect]
     Indication: GENERALISED ANXIETY DISORDER
     Dosage: 30 MG, DAILY (1/D)
     Route: 048
     Dates: start: 20081201, end: 20081201
  2. CYMBALTA [Suspect]
     Dosage: 60 MG, UNKNOWN
     Route: 065
     Dates: start: 20081201, end: 20081201
  3. LEXOTANIL [Concomitant]
     Indication: GENERALISED ANXIETY DISORDER
     Dosage: 1.5 MG OR 3 MG, DAILY (1/D)
     Route: 048

REACTIONS (2)
  - AGITATION [None]
  - DYSPHORIA [None]
